FAERS Safety Report 13675713 (Version 1)
Quarter: 2017Q2

REPORT INFORMATION
  Report Type: Report from Study
  Country: US (occurrence: US)
  Receive Date: 20170621
  Receipt Date: 20170621
  Transmission Date: 20170830
  Serious: Yes (Other)
  Sender: FDA-Public Use
  Company Number: US-BIOGEN-2017BI00384048

PATIENT
  Sex: Female

DRUGS (1)
  1. TYSABRI [Suspect]
     Active Substance: NATALIZUMAB
     Indication: MULTIPLE SCLEROSIS
     Route: 042
     Dates: start: 20070814, end: 20170215

REACTIONS (8)
  - Headache [Unknown]
  - Multiple sclerosis [Unknown]
  - Oral fungal infection [Unknown]
  - Oesophageal candidiasis [Unknown]
  - Gastrointestinal candidiasis [Unknown]
  - Musculoskeletal disorder [Unknown]
  - Infection [Unknown]
  - Urinary tract infection [Not Recovered/Not Resolved]

NARRATIVE: CASE EVENT DATE: 2007
